FAERS Safety Report 4374735-3 (Version None)
Quarter: 2004Q2

REPORT INFORMATION
  Report Type: 
  Country: None (occurrence: None)
  Receive Date: 20040604
  Receipt Date: 20040527
  Transmission Date: 20050107
  Serious: Yes (Other)
  Sender: FDA-Public Use
  Company Number: 2003182291DE

PATIENT
  Age: 62 Year
  Sex: Female
  Weight: 90 kg

DRUGS (8)
  1. GENOTROPIN [Suspect]
     Indication: HYPOPITUITARISM
     Dosage: 0.2 MG, QD
     Dates: start: 20030424, end: 20031019
  2. LIPOX [Concomitant]
  3. CRATAEGUTT NOVO (CRATAEGUS EXTRACT) [Concomitant]
  4. JODID (POTASSIUM IODIDE) [Concomitant]
  5. AMILORETIC [Concomitant]
  6. GYNOKADIN [Concomitant]
  7. CALCIUM [Concomitant]
  8. MAGNESIUM [Concomitant]

REACTIONS (2)
  - NEOPLASM RECURRENCE [None]
  - PITUITARY TUMOUR BENIGN [None]
